FAERS Safety Report 9349918 (Version 1)
Quarter: 2013Q2

REPORT INFORMATION
  Report Type: Spontaneous
  Country: DK (occurrence: DK)
  Receive Date: 20130614
  Receipt Date: 20130614
  Transmission Date: 20140414
  Serious: Yes (Other)
  Sender: FDA-Public Use
  Company Number: CHPA2013DK009842

PATIENT
  Sex: Female

DRUGS (1)
  1. NICOTINELL GUM [Suspect]
     Dosage: 2 MG, UNK
     Dates: start: 2006

REACTIONS (2)
  - Nicotine dependence [Unknown]
  - Treatment noncompliance [Unknown]
